FAERS Safety Report 9858973 (Version 1)
Quarter: 2014Q1

REPORT INFORMATION
  Report Type: Spontaneous
  Country: US (occurrence: None)
  Receive Date: 20140129
  Receipt Date: 20140129
  Transmission Date: 20141002
  Serious: Yes (Other)
  Sender: FDA-Public Use
  Company Number: 2014UCU075000065

PATIENT
  Age: 48 Year
  Sex: Female
  Weight: 81.4 kg

DRUGS (7)
  1. MERCAPTOPURINE [Suspect]
     Indication: CROHN^S DISEASE
     Dosage: 100 MG; QD;PO
     Route: 048
     Dates: start: 20121228
  2. NECON /00407401/ [Concomitant]
  3. PAROXETINE [Concomitant]
  4. HYDROCHLORIDE [Concomitant]
  5. MESALAMINE [Concomitant]
  6. PRESDNISONE [Concomitant]
  7. BUDESONIDE [Concomitant]

REACTIONS (1)
  - Basal cell carcinoma [None]
